FAERS Safety Report 23066232 (Version 1)
Quarter: 2023Q4

REPORT INFORMATION
  Report Type: Spontaneous
  Country: NL (occurrence: NL)
  Receive Date: 20231015
  Receipt Date: 20231015
  Transmission Date: 20240110
  Serious: Yes (Disabling)
  Sender: FDA-Public Use
  Company Number: NL-LRB-00913523

PATIENT
  Age: 55 Year
  Sex: Male
  Weight: 88 kg

DRUGS (1)
  1. CLOPIDOGREL [Suspect]
     Active Substance: CLOPIDOGREL BISULFATE
     Indication: Transient ischaemic attack
     Dosage: 75 MILLIGRAM
     Route: 065
     Dates: start: 20230911

REACTIONS (3)
  - Abdominal discomfort [Not Recovered/Not Resolved]
  - Dizziness [Not Recovered/Not Resolved]
  - Headache [Not Recovered/Not Resolved]
